FAERS Safety Report 16329253 (Version 1)
Quarter: 2019Q2

REPORT INFORMATION
  Report Type: Spontaneous
  Country: US (occurrence: US)
  Receive Date: 20190520
  Receipt Date: 20190520
  Transmission Date: 20190711
  Serious: No
  Sender: FDA-Public Use
  Company Number: US-BION-007788

PATIENT
  Sex: Female
  Weight: 60.33 kg

DRUGS (1)
  1. MOTRIN IB [Suspect]
     Active Substance: IBUPROFEN
     Indication: PAIN
     Route: 048

REACTIONS (4)
  - Polyuria [Unknown]
  - Limb discomfort [Unknown]
  - Incontinence [Unknown]
  - Incorrect dose administered [Not Recovered/Not Resolved]
